FAERS Safety Report 23488338 (Version 1)
Quarter: 2024Q1

REPORT INFORMATION
  Report Type: Spontaneous
  Country: US (occurrence: US)
  Receive Date: 20240206
  Receipt Date: 20240206
  Transmission Date: 20240409
  Serious: No
  Sender: FDA-Public Use
  Company Number: US-SANOFI-01923009

PATIENT
  Sex: Female

DRUGS (1)
  1. DUPIXENT [Suspect]
     Active Substance: DUPILUMAB
     Indication: Asthma
     Dosage: UNK UNK, 1X

REACTIONS (4)
  - Mouth ulceration [Unknown]
  - Periorbital swelling [Recovered/Resolved]
  - Erythema [Not Recovered/Not Resolved]
  - Urticaria [Recovered/Resolved]
